FAERS Safety Report 18189347 (Version 1)
Quarter: 2020Q3

REPORT INFORMATION
  Report Type: Spontaneous
  Country: US (occurrence: US)
  Receive Date: 20200824
  Receipt Date: 20200824
  Transmission Date: 20201103
  Serious: No
  Sender: FDA-Public Use
  Company Number: US-PAIPHARMA-2020-US-002427

PATIENT
  Age: 17 Year
  Sex: Female
  Weight: 70.31 kg

DRUGS (7)
  1. NORETHINDRONE. [Concomitant]
     Active Substance: NORETHINDRONE
     Dosage: 2 TABLETS DAILY
  2. VITAMIN D [Concomitant]
     Active Substance: VITAMIN D NOS
  3. SENNA [Concomitant]
     Active Substance: SENNA LEAF\SENNOSIDES\SENNOSIDES A AND B
     Dosage: ONCE DAILY
  4. LORATADINE. [Concomitant]
     Active Substance: LORATADINE
  5. MULTIVITAMIN [Concomitant]
     Active Substance: VITAMINS
  6. LACTULOSE SOLUTION USP, AF [Suspect]
     Active Substance: LACTULOSE
     Indication: CONSTIPATION
     Dosage: 5ML TID
     Route: 048
     Dates: start: 201912, end: 20200203
  7. VITAMIN B12 [Concomitant]
     Active Substance: CYANOCOBALAMIN

REACTIONS (1)
  - Abdominal pain upper [Recovered/Resolved]

NARRATIVE: CASE EVENT DATE: 201912
